FAERS Safety Report 10530053 (Version 1)
Quarter: 2014Q4

REPORT INFORMATION
  Report Type: Spontaneous
  Country: US (occurrence: None)
  Receive Date: 20141020
  Receipt Date: 20141020
  Transmission Date: 20150528
  Serious: Yes (Death, Hospitalization)
  Sender: FDA-Public Use
  Company Number: None

PATIENT
  Sex: Male
  Weight: 106.8 kg

DRUGS (1)
  1. CYTARABINE. [Suspect]
     Active Substance: CYTARABINE
     Dates: start: 20140919

REACTIONS (17)
  - Tachycardia [None]
  - Atrial fibrillation [None]
  - Pulmonary alveolar haemorrhage [None]
  - Acidosis [None]
  - Thrombosis in device [None]
  - Dizziness postural [None]
  - Pneumonia [None]
  - Colitis [None]
  - Ejection fraction decreased [None]
  - Atrial flutter [None]
  - Acute kidney injury [None]
  - Hypertension [None]
  - Bacteraemia [None]
  - Lung consolidation [None]
  - Blood pressure decreased [None]
  - Supraventricular tachycardia [None]
  - Drug ineffective [None]

NARRATIVE: CASE EVENT DATE: 20141007
